FAERS Safety Report 9333095 (Version 3)
Quarter: 2013Q3

REPORT INFORMATION
  Report Type: Spontaneous
  Country: DE (occurrence: DE)
  Receive Date: 20130606
  Receipt Date: 20130730
  Transmission Date: 20140515
  Serious: Yes (Hospitalization)
  Sender: FDA-Public Use
  Company Number: DE-JNJFOC-20130600094

PATIENT
  Age: 52 Year
  Sex: Female
  Weight: 76 kg

DRUGS (7)
  1. XARELTO [Suspect]
     Indication: CEREBROVASCULAR ACCIDENT PROPHYLAXIS
     Route: 048
     Dates: start: 20130504, end: 20130522
  2. XARELTO [Suspect]
     Indication: ATRIAL FIBRILLATION
     Route: 048
     Dates: start: 20130504, end: 20130522
  3. XARELTO [Suspect]
     Indication: KNEE OPERATION
     Route: 048
     Dates: start: 20130504, end: 20130522
  4. METOPROLOL [Concomitant]
     Indication: HYPERTENSION
     Route: 065
  5. METOPROLOL [Concomitant]
     Indication: HYPERTENSION
     Dosage: DOSAGE:2-0-1-0
     Route: 065
     Dates: start: 20130529
  6. L-THYROXIN [Concomitant]
     Indication: HYPOTHYROIDISM
     Route: 065
  7. CLEXANE [Concomitant]
     Dosage: DOSAGE:1-0-1-0
     Route: 065

REACTIONS (2)
  - Pulmonary embolism [Recovering/Resolving]
  - Deep vein thrombosis postoperative [Recovering/Resolving]
